FAERS Safety Report 17854597 (Version 2)
Quarter: 2020Q3

REPORT INFORMATION
  Report Type: Report from Study
  Country: US (occurrence: US)
  Receive Date: 20200603
  Receipt Date: 20200908
  Transmission Date: 20201103
  Serious: Yes (Hospitalization, Other)
  Sender: FDA-Public Use
  Company Number: US-BAYER-2020-099126

PATIENT
  Age: 67 Year
  Sex: Male

DRUGS (6)
  1. CENTRUM [MINERALS NOS;VITAMINS NOS] [Concomitant]
     Dosage: UNK
  2. PROCHLORPERAZINE. [Concomitant]
     Active Substance: PROCHLORPERAZINE
     Indication: VOMITING
     Dosage: 10 MG
     Dates: start: 20200722
  3. PERCOCET [Concomitant]
     Active Substance: ACETAMINOPHEN\OXYCODONE HYDROCHLORIDE
     Indication: PAIN
     Dosage: 5/325
     Dates: start: 20200722
  4. VITAMINS NOS [Concomitant]
     Active Substance: VITAMINS
     Dosage: UNK
     Dates: start: 20200506
  5. ELIQUIS [Concomitant]
     Active Substance: APIXABAN
     Indication: THROMBOSIS PROPHYLAXIS
     Dosage: 5 MG
     Dates: start: 20200506
  6. NEXAVAR [Suspect]
     Active Substance: SORAFENIB
     Indication: HEPATOCELLULAR CARCINOMA
     Dosage: 200 MG, BID
     Route: 048
     Dates: start: 20200514

REACTIONS (8)
  - Fatigue [Recovered/Resolved]
  - Dehydration [Recovering/Resolving]
  - Malnutrition [None]
  - Urinary tract infection [Recovering/Resolving]
  - Weight decreased [Recovered/Resolved]
  - Blood test abnormal [Recovering/Resolving]
  - Decreased appetite [Recovered/Resolved]
  - Product dose omission issue [None]

NARRATIVE: CASE EVENT DATE: 20200515
